FAERS Safety Report 18404699 (Version 2)
Quarter: 2020Q4

REPORT INFORMATION
  Report Type: Report from Study
  Country: US (occurrence: US)
  Receive Date: 20201020
  Receipt Date: 20201207
  Transmission Date: 20210114
  Serious: Yes (Other)
  Sender: FDA-Public Use
  Company Number: US-BAYER-2020-221818

PATIENT
  Age: 68 Year
  Sex: Female
  Weight: 85.26 kg

DRUGS (2)
  1. ADEMPAS [Suspect]
     Active Substance: RIOCIGUAT
     Indication: PULMONARY ARTERIAL HYPERTENSION
     Dosage: 1 MG, TID
     Route: 048
     Dates: start: 20200922
  2. SILDENAFIL CITRATE. [Concomitant]
     Active Substance: SILDENAFIL CITRATE
     Dosage: UNK

REACTIONS (5)
  - Lung disorder [None]
  - Mobility decreased [None]
  - Rehabilitation therapy [None]
  - Product dose omission issue [None]
  - Gait disturbance [None]

NARRATIVE: CASE EVENT DATE: 2020
